FAERS Safety Report 23268037 (Version 1)
Quarter: 2023Q4

REPORT INFORMATION
  Report Type: Report from Study
  Country: CA (occurrence: CA)
  Receive Date: 20231206
  Receipt Date: 20231206
  Transmission Date: 20240110
  Serious: Yes (Other)
  Sender: FDA-Public Use
  Company Number: CA-MYLANLABS-2023M1090988

PATIENT
  Sex: Male
  Weight: 54.11 kg

DRUGS (1)
  1. OGIVRI [Suspect]
     Active Substance: TRASTUZUMAB-DKST
     Indication: Metastatic gastric cancer
     Dosage: 216 MILLIGRAM, Q2W (EVERY 2 WEEKS)
     Route: 042
     Dates: start: 20230720

REACTIONS (2)
  - Neutropenia [Not Recovered/Not Resolved]
  - Malaise [Unknown]
